FAERS Safety Report 9085573 (Version 1)
Quarter: 2013Q1

REPORT INFORMATION
  Report Type: Report from Study
  Country: US (occurrence: US)
  Receive Date: 20130131
  Receipt Date: 20130131
  Transmission Date: 20140127
  Serious: No
  Sender: FDA-Public Use
  Company Number: US-ABBOTT-12P-163-0990220-00

PATIENT
  Age: 16 Year
  Sex: Male

DRUGS (2)
  1. HUMIRA [Suspect]
     Indication: CROHN^S DISEASE
     Dates: start: 200904
  2. HUMIRA [Suspect]
     Indication: NECROTISING GRANULOMATOUS LYMPHADENITIS

REACTIONS (2)
  - Nausea [Not Recovered/Not Resolved]
  - Cellulitis of male external genital organ [Not Recovered/Not Resolved]
